FAERS Safety Report 14311287 (Version 2)
Quarter: 2017Q4

REPORT INFORMATION
  Report Type: Spontaneous
  Country: PL (occurrence: PL)
  Receive Date: 20171221
  Receipt Date: 20171224
  Transmission Date: 20180321
  Serious: Yes (Death)
  Sender: FDA-Public Use
  Company Number: PL-B.I. PHARMACEUTICALS,INC./RIDGEFIELD-2017-BI-067690

PATIENT
  Age: 51 Year
  Sex: Female

DRUGS (1)
  1. OFEV [Suspect]
     Active Substance: NINTEDANIB
     Indication: PRODUCT USED FOR UNKNOWN INDICATION
     Route: 065
     Dates: start: 20170623

REACTIONS (5)
  - Nausea [Unknown]
  - Disease progression [Fatal]
  - Respiratory failure [Fatal]
  - Circulatory collapse [Fatal]
  - Diarrhoea [Unknown]
